FAERS Safety Report 17441471 (Version 1)
Quarter: 2020Q1

REPORT INFORMATION
  Report Type: Spontaneous
  Country: FR (occurrence: FR)
  Receive Date: 20200220
  Receipt Date: 20200220
  Transmission Date: 20200409
  Serious: Yes (Hospitalization)
  Sender: FDA-Public Use
  Company Number: FR-EISAI MEDICAL RESEARCH-EC-2020-070063

PATIENT
  Age: 73 Year
  Sex: Female
  Weight: 104 kg

DRUGS (9)
  1. ACUPAN [Concomitant]
     Active Substance: NEFOPAM HYDROCHLORIDE
     Indication: ANALGESIC INTERVENTION SUPPORTIVE THERAPY
     Dosage: DOSAGE AND FREQUENCY UNKNOWN
     Dates: start: 20200110, end: 20200124
  2. ACTISKENAN [Concomitant]
     Active Substance: MORPHINE SULFATE
     Indication: ANALGESIC INTERVENTION SUPPORTIVE THERAPY
     Dosage: DOSAGE AND FREQUENCY UNKNOWN
     Dates: start: 20200114, end: 20200124
  3. VITAMINE C [Suspect]
     Active Substance: ASCORBIC ACID
     Indication: COMPLEX REGIONAL PAIN SYNDROME
     Route: 048
     Dates: start: 20200114, end: 20200124
  4. BACTRIM [Suspect]
     Active Substance: SULFAMETHOXAZOLE\TRIMETHOPRIM
     Indication: ANTIBIOTIC THERAPY
     Route: 048
     Dates: start: 20200113, end: 20200124
  5. LAMALINE [Concomitant]
     Indication: ANALGESIC INTERVENTION SUPPORTIVE THERAPY
     Dosage: DOSAGE AND FREQUENCY UNKNOWN
     Dates: start: 20200114, end: 20200124
  6. PROFENID [Concomitant]
     Active Substance: KETOPROFEN
     Indication: ANALGESIC INTERVENTION SUPPORTIVE THERAPY
     Dates: start: 20200114, end: 20200116
  7. LINEZOLIDE [Concomitant]
     Active Substance: LINEZOLID
     Indication: ANTIBIOTIC THERAPY
     Dates: start: 20200108, end: 20200113
  8. PIPERACILLINE TAZOBACTAM [Concomitant]
     Active Substance: PIPERACILLIN SODIUM\TAZOBACTAM SODIUM
     Indication: ANTIBIOTIC THERAPY
     Dosage: DOSAGE AND FREQUENCY UNKNOWN
     Dates: start: 20200108, end: 20200113
  9. PARIET [Suspect]
     Active Substance: RABEPRAZOLE SODIUM
     Indication: PRODUCT USED FOR UNKNOWN INDICATION
     Route: 048
     Dates: start: 20200114, end: 20200124

REACTIONS (1)
  - Rash maculo-papular [Recovered/Resolved]

NARRATIVE: CASE EVENT DATE: 20200121
